FAERS Safety Report 9170639 (Version 1)
Quarter: 2013Q1

REPORT INFORMATION
  Report Type: Spontaneous
  Country: IT (occurrence: None)
  Receive Date: 20130311
  Receipt Date: 20130311
  Transmission Date: 20140127
  Serious: Yes (Hospitalization)
  Sender: FDA-Public Use
  Company Number: 2013AP003379

PATIENT
  Age: 93 Year
  Sex: Female

DRUGS (14)
  1. CLARITHROMYCIN (CLARITHROMYCIN) [Suspect]
     Indication: PHARYNGITIS
     Route: 048
     Dates: start: 20121201, end: 20121204
  2. CONGESCOR (BISOPROLOL) [Concomitant]
  3. LASIX [Concomitant]
  4. CARDIOASPIRIN (ACETYLSALICYLIC ACID) [Concomitant]
  5. PEPTAZOL [Concomitant]
  6. MONOKET (ISOSORBIDE MONONITRATE) [Concomitant]
  7. SERETAIDE DISKUS (GALENIC /FLUTICASONE/SALMETEROL/) [Concomitant]
  8. ZYLORIC (ALLOPURINOL) [Concomitant]
  9. DROPAXIN (PAROXETINE HYDROCHLORIDE) [Concomitant]
  10. ALPRAZIG (ALPRAZOLAM) [Concomitant]
  11. PLASIL [Concomitant]
  12. PLASIL [Concomitant]
  13. BENTELAN (BETAMETHASONE SODIUM PHOSPHATE) [Concomitant]
  14. SIMVASTATIN (SIMVASTATIN) [Concomitant]

REACTIONS (3)
  - Blood creatinine increased [None]
  - Blood potassium increased [None]
  - Toxicity to various agents [None]
